FAERS Safety Report 17124222 (Version 4)
Quarter: 2020Q4

REPORT INFORMATION
  Report Type: Report from Study
  Country: IL (occurrence: IL)
  Receive Date: 20191206
  Receipt Date: 20201007
  Transmission Date: 20210113
  Serious: Yes (Death, Other)
  Sender: FDA-Public Use
  Company Number: IL-IPSEN BIOPHARMACEUTICALS, INC.-2019-14134

PATIENT
  Age: 67 Year
  Sex: Female
  Weight: 55 kg

DRUGS (16)
  1. SOMATULINE AUTOGEL [Suspect]
     Active Substance: LANREOTIDE ACETATE
     Indication: ACROMEGALY
     Route: 058
     Dates: start: 20160424
  2. JANUET XR [Concomitant]
     Active Substance: METFORMIN HYDROCHLORIDE\SITAGLIPTIN PHOSPHATE
     Dosage: 100/1000 MG (M) ONCE IN THE EVENING
  3. PROCTO GLYVENOL [Concomitant]
  4. VENLAFAXINE HYDROCHLORIDE. [Concomitant]
     Active Substance: VENLAFAXINE HYDROCHLORIDE
     Dosage: STRENGTH -37.5 (UNITS UNSPECIFIED)
  5. LOSARTAN POTASSIUM AND HYDROCHLOROTHIAZIDE [Concomitant]
     Active Substance: HYDROCHLOROTHIAZIDE\LOSARTAN POTASSIUM
  6. ENCYPALMED [Concomitant]
  7. LANSOPRAZOLE. [Concomitant]
     Active Substance: LANSOPRAZOLE
  8. COLECALCIFEROL [Concomitant]
     Active Substance: CHOLECALCIFEROL
     Dosage: 8 DROPS
  9. MULTIVITAMIN [Concomitant]
     Active Substance: VITAMINS
  10. SPIRONOLACTONE. [Concomitant]
     Active Substance: SPIRONOLACTONE
  11. PROCTO GLYVENOL CREAM [Concomitant]
  12. IRON [Concomitant]
     Active Substance: IRON
  13. TOUJEO [Concomitant]
     Active Substance: INSULIN GLARGINE
     Dosage: 300 U/ 1 ML PEN (10 UNITS PER DAY)
  14. CALCIUM CARBONATE. [Concomitant]
     Active Substance: CALCIUM CARBONATE
  15. VABEN [Concomitant]
     Active Substance: OXAZEPAM
  16. ZINC. [Concomitant]
     Active Substance: ZINC

REACTIONS (10)
  - Macular cyst [Unknown]
  - Fibromyalgia [Unknown]
  - Glioblastoma [Fatal]
  - Cataract [Not Recovered/Not Resolved]
  - Macular pseudohole [Unknown]
  - Macular hole [Not Recovered/Not Resolved]
  - Maculopathy [Recovering/Resolving]
  - Anxiety disorder [Unknown]
  - Rotator cuff syndrome [Unknown]
  - Periarthritis [Unknown]

NARRATIVE: CASE EVENT DATE: 20160825
